FAERS Safety Report 9110133 (Version 1)
Quarter: 2013Q1

REPORT INFORMATION
  Report Type: Report from Study
  Country: US (occurrence: US)
  Receive Date: 20130222
  Receipt Date: 20130222
  Transmission Date: 20140127
  Serious: Yes (Other)
  Sender: FDA-Public Use
  Company Number: US-ROCHE-1192811

PATIENT
  Sex: 0

DRUGS (3)
  1. BEVACIZUMAB [Suspect]
     Indication: NEUROBLASTOMA RECURRENT
     Route: 042
  2. IRINOTECAN [Suspect]
     Indication: NEUROBLASTOMA RECURRENT
     Route: 042
  3. TEMOZOLOMIDE [Suspect]
     Indication: NEUROBLASTOMA RECURRENT
     Route: 048

REACTIONS (5)
  - Bone marrow failure [Unknown]
  - Proteinuria [Unknown]
  - Epistaxis [Unknown]
  - Diarrhoea [Unknown]
  - Vomiting [Unknown]
